FAERS Safety Report 4814644-6 (Version None)
Quarter: 2005Q4

REPORT INFORMATION
  Report Type: 
  Country: None (occurrence: None)
  Receive Date: 20051028
  Receipt Date: 20051018
  Transmission Date: 20060501
  Serious: Yes (Hospitalization)
  Sender: FDA-Public Use
  Company Number: JP-JPN-A20052494

PATIENT
  Age: 39 Year
  Sex: Female

DRUGS (1)
  1. PAXIL [Suspect]
     Route: 048

REACTIONS (7)
  - ACTIVITIES OF DAILY LIVING IMPAIRED [None]
  - DRUG WITHDRAWAL SYNDROME [None]
  - FEAR [None]
  - INSOMNIA [None]
  - IRRITABILITY [None]
  - RESTLESS LEGS SYNDROME [None]
  - SCREAMING [None]
